FAERS Safety Report 25448072 (Version 2)
Quarter: 2025Q2

REPORT INFORMATION
  Report Type: Report from Study
  Country: US (occurrence: US)
  Receive Date: 20250617
  Receipt Date: 20250630
  Transmission Date: 20250717
  Serious: Yes (Hospitalization)
  Sender: EISAI
  Company Number: US-Eisai-EC-2025-189695

PATIENT
  Age: 46 Year
  Sex: Male

DRUGS (2)
  1. LENVIMA [Suspect]
     Active Substance: LENVATINIB
     Indication: Thyroid cancer
     Dates: start: 20250520, end: 202505
  2. LENVIMA [Suspect]
     Active Substance: LENVATINIB
     Dates: start: 202505, end: 202506

REACTIONS (5)
  - Arthralgia [Recovered/Resolved]
  - Gait inability [Recovered/Resolved]
  - Back pain [Unknown]
  - Asthenia [Unknown]
  - Blood pressure increased [Unknown]

NARRATIVE: CASE EVENT DATE: 20250520
